FAERS Safety Report 23677928 (Version 1)
Quarter: 2024Q1

REPORT INFORMATION
  Report Type: Spontaneous
  Country: US (occurrence: US)
  Receive Date: 20240327
  Receipt Date: 20240327
  Transmission Date: 20240410
  Serious: Yes (Life-Threatening, Other)
  Sender: FDA-Public Use
  Company Number: US-OTSUKA-2024_007741

PATIENT

DRUGS (3)
  1. REXULTI [Suspect]
     Active Substance: BREXPIPRAZOLE
     Indication: Product used for unknown indication
     Dosage: 2 MG
     Route: 065
  2. REXULTI [Suspect]
     Active Substance: BREXPIPRAZOLE
     Dosage: 1 MG
     Route: 065
  3. REXULTI [Suspect]
     Active Substance: BREXPIPRAZOLE
     Dosage: 1 MG EVERY OTHER DAY FOR 2 WEEKS
     Route: 065
     Dates: end: 20240313

REACTIONS (6)
  - Suicidal ideation [Unknown]
  - Illness [Unknown]
  - Withdrawal syndrome [Unknown]
  - General physical condition abnormal [Unknown]
  - Nausea [Unknown]
  - Inappropriate schedule of product administration [Unknown]
